FAERS Safety Report 7427884-7 (Version None)
Quarter: 2011Q2

REPORT INFORMATION
  Report Type: 
  Country: None (occurrence: None)
  Receive Date: 20110421
  Receipt Date: 20110406
  Transmission Date: 20111010
  Serious: Yes (Hospitalization)
  Sender: FDA-Public Use
  Company Number: AU-CELGENEUS-008-50794-11040507

PATIENT
  Sex: Male
  Weight: 77.9 kg

DRUGS (4)
  1. VIDAZA [Suspect]
     Route: 050
     Dates: start: 20110328
  2. PANOBINOSTAT [Suspect]
  3. VIDAZA [Suspect]
  4. PANOBINOSTAT [Suspect]
     Dosage: 40 MILLIGRAM
     Route: 065
     Dates: start: 20110401, end: 20110408

REACTIONS (3)
  - FALL [None]
  - PRESYNCOPE [None]
  - DYSPNOEA [None]
